FAERS Safety Report 24228304 (Version 1)
Quarter: 2024Q3

REPORT INFORMATION
  Report Type: Spontaneous
  Country: JP (occurrence: JP)
  Receive Date: 20240820
  Receipt Date: 20240820
  Transmission Date: 20241017
  Serious: Yes (Other)
  Sender: PFIZER
  Company Number: JP-PFIZER INC-202400233544

PATIENT
  Sex: Female

DRUGS (1)
  1. CLINDAMYCIN HYDROCHLORIDE [Suspect]
     Active Substance: CLINDAMYCIN HYDROCHLORIDE
     Indication: Osteitis
     Dosage: 150 MG, 3X/DAY
     Route: 048

REACTIONS (17)
  - Superinfection [Unknown]
  - Diarrhoea [Unknown]
  - Off label use [Unknown]
  - Stomatitis [Unknown]
  - Lip pain [Unknown]
  - Hyperhidrosis [Unknown]
  - Erythema [Unknown]
  - Miliaria [Unknown]
  - Rash macular [Unknown]
  - Eczema [Unknown]
  - Candida infection [Unknown]
  - Paraesthesia [Unknown]
  - Sinusitis [Unknown]
  - Nasopharyngitis [Unknown]
  - Collagen disorder [Unknown]
  - Foreign body reaction [Unknown]
  - Pruritus [Unknown]

NARRATIVE: CASE EVENT DATE: 20240701
